FAERS Safety Report 5277901-8 (Version None)
Quarter: 2007Q1

REPORT INFORMATION
  Report Type: 
  Country: None (occurrence: None)
  Receive Date: 20070327
  Receipt Date: 20070319
  Transmission Date: 20070707
  Serious: Yes (Death, Hospitalization, Other)
  Sender: FDA-Public Use
  Company Number: US-PFIZER INC-2007021451

PATIENT
  Sex: Female

DRUGS (1)
  1. CELEBREX [Suspect]
     Indication: PAIN

REACTIONS (4)
  - CARDIAC DISORDER [None]
  - CORONARY ARTERY OCCLUSION [None]
  - DEATH [None]
  - SWELLING [None]
